FAERS Safety Report 18655923 (Version 3)
Quarter: 2021Q1

REPORT INFORMATION
  Report Type: Spontaneous
  Country: DE (occurrence: DE)
  Receive Date: 20201223
  Receipt Date: 20210201
  Transmission Date: 20210419
  Serious: No
  Sender: FDA-Public Use
  Company Number: DE-PFIZER INC-2020458255

PATIENT

DRUGS (1)
  1. SAYANA [Suspect]
     Active Substance: MEDROXYPROGESTERONE
     Dosage: UNK
     Dates: start: 20201020

REACTIONS (1)
  - Device deployment issue [Unknown]

NARRATIVE: CASE EVENT DATE: 20201020
